FAERS Safety Report 6652283-5 (Version None)
Quarter: 2010Q1

REPORT INFORMATION
  Report Type: 
  Country: None (occurrence: None)
  Receive Date: 20100323
  Receipt Date: 20100308
  Transmission Date: 20100710
  Serious: Yes (Other)
  Sender: FDA-Public Use
  Company Number: AUR-APL-2010-00801

PATIENT
  Sex: Male
  Weight: 46.71 kg

DRUGS (9)
  1. LISINOPRIL [Suspect]
     Indication: HYPERTENSION
     Dosage: 20 MG
  2. GLUCOTROL [Suspect]
     Indication: TYPE 2 DIABETES MELLITUS
  3. GLUCOTROL XL [Suspect]
     Indication: DIABETES MELLITUS
     Dosage: 2X/DAY
     Dates: start: 19980101, end: 19980101
  4. PRAVASTATIN [Suspect]
     Indication: BLOOD CHOLESTEROL INCREASED
     Dosage: 40MG
  5. GLIPIZIDE [Suspect]
     Indication: DIABETES MELLITUS
     Dosage: 10MG -2X/DAY
     Dates: start: 20080101
  6. ASPIRIN [Suspect]
     Indication: BACK PAIN
     Dosage: 500MG -1X/DAY
  7. CITRACAL + D [Suspect]
     Dosage: 2X/DAY
     Dates: end: 20010201
  8. GLUCOPHAGE [Concomitant]
  9. UNSPECIFIED VITAMINS [Concomitant]

REACTIONS (9)
  - BLOOD CHOLESTEROL INCREASED [None]
  - BLOOD GLUCOSE INCREASED [None]
  - DOCUMENTED HYPERSENSITIVITY TO ADMINISTERED DRUG [None]
  - ERYTHEMA [None]
  - GLYCOSYLATED HAEMOGLOBIN INCREASED [None]
  - INFLAMMATION [None]
  - INSOMNIA [None]
  - PRURITUS [None]
  - RASH [None]
